FAERS Safety Report 8106989-1 (Version None)
Quarter: 2012Q1

REPORT INFORMATION
  Report Type: 
  Country: None (occurrence: None)
  Receive Date: 20120202
  Receipt Date: 20120202
  Transmission Date: 20120608
  Serious: No
  Sender: FDA-Public Use
  Company Number: None

PATIENT
  Sex: Female
  Weight: 58.967 kg

DRUGS (1)
  1. LO/OVRAL-28 [Suspect]
     Indication: MENSTRUAL DISORDER
     Dosage: 1 PILL
     Route: 048
     Dates: start: 20111001, end: 20120101

REACTIONS (3)
  - ABDOMINAL PAIN [None]
  - AMENORRHOEA [None]
  - IRRITABILITY [None]
